FAERS Safety Report 7969917 (Version 2)
Quarter: 2013Q1

REPORT INFORMATION
  Report Type: Spontaneous
  Country: FR (occurrence: FR)
  Receive Date: 20110601
  Receipt Date: 20130226
  Transmission Date: 20140127
  Serious: Yes (Other)
  Sender: FDA-Public Use
  Company Number: FR-UCBSA-030590

PATIENT
  Age: 48 Year
  Sex: Male
  Weight: 88 kg

DRUGS (4)
  1. CIMZIA [Suspect]
     Indication: RHEUMATOID ARTHRITIS
     Route: 058
     Dates: start: 20110125, end: 20110301
  2. CIMZIA [Suspect]
     Indication: RHEUMATOID ARTHRITIS
     Dosage: UNKNOWN DOSE
     Route: 058
  3. ARAVA [Concomitant]
     Indication: RHEUMATOID ARTHRITIS
     Dates: start: 20101015
  4. CORTANCYL [Concomitant]
     Indication: RHEUMATOID ARTHRITIS
     Dates: start: 20100804

REACTIONS (2)
  - Angioedema [Recovered/Resolved]
  - Generalised erythema [Recovered/Resolved]
